FAERS Safety Report 9220219 (Version 1)
Quarter: 2013Q2

REPORT INFORMATION
  Report Type: Spontaneous
  Country: US (occurrence: US)
  Receive Date: 20130409
  Receipt Date: 20130409
  Transmission Date: 20140414
  Serious: Yes (Other)
  Sender: FDA-Public Use
  Company Number: US-PFIZER INC-2013107034

PATIENT
  Sex: Male

DRUGS (3)
  1. SUTENT [Suspect]
     Indication: METASTATIC RENAL CELL CARCINOMA
     Dosage: 50 MG, UNK
     Dates: start: 201207
  2. SUTENT [Suspect]
     Dosage: 25 MG, UNK
  3. SUTENT [Suspect]
     Dosage: 37.5 MG, 1X/DAY
     Dates: start: 201212

REACTIONS (7)
  - Renal atrophy [Unknown]
  - Renal impairment [Unknown]
  - Eye oedema [Unknown]
  - Local swelling [Unknown]
  - Joint swelling [Unknown]
  - Diarrhoea [Unknown]
  - Drug intolerance [Unknown]
